FAERS Safety Report 4593925-8 (Version None)
Quarter: 2005Q1

REPORT INFORMATION
  Report Type: 
  Country: None (occurrence: None)
  Receive Date: 20050218
  Receipt Date: 20040708
  Transmission Date: 20050727
  Serious: Yes (Other)
  Sender: FDA-Public Use
  Company Number: 200510132BBE

PATIENT
  Sex: Male

DRUGS (10)
  1. KOATE [Suspect]
     Indication: FACTOR VIII DEFICIENCY
     Dosage: SEE IMAGE
     Dates: start: 19840101, end: 19850101
  2. KOATE [Suspect]
     Indication: FACTOR VIII DEFICIENCY
     Dosage: SEE IMAGE
     Dates: start: 19850101, end: 19900101
  3. KOATE [Suspect]
     Indication: FACTOR VIII DEFICIENCY
     Dosage: SEE IMAGE
     Dates: start: 19830101
  4. KOATE [Suspect]
     Indication: FACTOR VIII DEFICIENCY
     Dosage: SEE IMAGE
     Dates: start: 19900101
  5. ANTIHEMOPHILIC FACTOR (HUMAN) [Suspect]
     Dosage: SEE IMAGE
     Dates: start: 19820101
  6. ANTIHEMOPHILIC FACTOR (HUMAN) [Suspect]
     Dosage: SEE IMAGE
     Dates: start: 19840101
  7. ANTIHEMOPHILIC FACTOR (HUMAN) [Suspect]
     Dosage: SEE IMAGE
     Dates: start: 19820101
  8. ANTIHEMOPHILIC FACTOR (HUMAN) [Suspect]
     Dosage: SEE IMAGE
     Dates: start: 19850101
  9. ANTIHEMOPHILIC FACTOR (HUMAN) [Suspect]
     Dosage: SEE IMAGE
     Dates: start: 19800101
  10. ANTIHEMOPHILIC FACTOR (HUMAN) [Suspect]
     Dosage: SEE IMAGE
     Dates: start: 19850101

REACTIONS (3)
  - HEPATITIS B [None]
  - HEPATITIS C [None]
  - HIV INFECTION [None]
